FAERS Safety Report 6138602-7 (Version None)
Quarter: 2009Q1

REPORT INFORMATION
  Report Type: 
  Country: None (occurrence: None)
  Receive Date: 20090326
  Receipt Date: 20090319
  Transmission Date: 20090719
  Serious: Yes (Death)
  Sender: FDA-Public Use
  Company Number: TCI2009A00907

PATIENT
  Age: 65 Year
  Sex: Female

DRUGS (6)
  1. GEFARNATE (GEFARNATE) [Suspect]
     Indication: PROPHYLAXIS AGAINST GASTROINTESTINAL ULCER
     Dosage: 50 MG , ORAL
     Route: 048
     Dates: start: 20080523, end: 20090301
  2. BENET TABLETS 17.5MG (RISEDRONATE SODIUM) [Concomitant]
  3. OSTELUC (ETOLUC) [Concomitant]
  4. ALOSENN (ALOSENN) [Concomitant]
  5. ADALAT CC [Concomitant]
  6. PREDNISOLONE [Concomitant]

REACTIONS (1)
  - DEATH [None]
